FAERS Safety Report 23720245 (Version 1)
Quarter: 2024Q2

REPORT INFORMATION
  Report Type: Spontaneous
  Country: NL (occurrence: NL)
  Receive Date: 20240408
  Receipt Date: 20240408
  Transmission Date: 20240715
  Serious: Yes (Other)
  Sender: FDA-Public Use
  Company Number: NL-009507513-2404NLD001570

PATIENT
  Age: 61 Year
  Sex: Female

DRUGS (1)
  1. TEMOZOLOMIDE [Suspect]
     Active Substance: TEMOZOLOMIDE
     Indication: Glioblastoma
     Dosage: UNK

REACTIONS (15)
  - Dystonia [Unknown]
  - Facial paralysis [Unknown]
  - Depressed mood [Unknown]
  - Mobility decreased [Unknown]
  - Fall [Unknown]
  - Muscular weakness [Unknown]
  - Fatigue [Unknown]
  - Disturbance in attention [Unknown]
  - Nausea [Unknown]
  - Vomiting [Unknown]
  - Sleep disorder [Unknown]
  - Pain [Unknown]
  - Dyspnoea [Unknown]
  - Asthenia [Unknown]
  - Oedema [Unknown]
